FAERS Safety Report 17129667 (Version 1)
Quarter: 2019Q4

REPORT INFORMATION
  Report Type: Spontaneous
  Country: US (occurrence: US)
  Receive Date: 20191115
  Receipt Date: 20191115
  Transmission Date: 20200122
  Serious: Yes (Disabling, Other)
  Sender: FDA-Public Use
  Company Number: None

PATIENT
  Age: 61 Year
  Sex: Female
  Weight: 62.6 kg

DRUGS (1)
  1. VARITHENA [Suspect]
     Active Substance: POLIDOCANOL
     Indication: VEIN DISORDER
     Dosage: ?          OTHER FREQUENCY:2 DAYS ONLY;OTHER ROUTE:INJECTION?
     Dates: start: 20190304, end: 20190325

REACTIONS (14)
  - Induration [None]
  - Dizziness [None]
  - Road traffic accident [None]
  - Pruritus [None]
  - Peripheral swelling [None]
  - Depression [None]
  - Thrombosis [None]
  - Visual impairment [None]
  - Contusion [None]
  - Hypoaesthesia [None]
  - Bedridden [None]
  - Pain in extremity [None]
  - Headache [None]
  - Gout [None]

NARRATIVE: CASE EVENT DATE: 20190304
